FAERS Safety Report 5231347-7 (Version None)
Quarter: 2007Q1

REPORT INFORMATION
  Report Type: 
  Country: None (occurrence: None)
  Receive Date: 20070206
  Receipt Date: 20070202
  Transmission Date: 20070707
  Serious: Yes (Other)
  Sender: FDA-Public Use
  Company Number: 2006UW19703

PATIENT
  Age: 72 Year
  Sex: Female

DRUGS (3)
  1. ARIMIDEX [Suspect]
     Indication: BREAST CANCER
     Route: 048
     Dates: start: 20061010
  2. HEART MEDICATIONS [Concomitant]
  3. DIABETES MEDICATION [Concomitant]

REACTIONS (2)
  - BREAST MASS [None]
  - BREAST PAIN [None]
